FAERS Safety Report 26008708 (Version 4)
Quarter: 2025Q4

REPORT INFORMATION
  Report Type: Spontaneous
  Country: US (occurrence: US)
  Receive Date: 20251106
  Receipt Date: 20251124
  Transmission Date: 20260117
  Serious: No
  Sender: SANOFI AVENTIS
  Company Number: US-ASTELLAS-2025-AER-059670

PATIENT
  Age: 70 Year
  Sex: Male

DRUGS (11)
  1. FLOMAX [Suspect]
     Active Substance: TAMSULOSIN HYDROCHLORIDE
     Indication: Pollakiuria
     Dosage: 0.8 MG, QD (INCREASED IT TO TWOINITIAL DOSE WAS ONE 0.4 MG CAPSULE PER DAY. THEN DOCTOR INCREASED TO
     Route: 065
     Dates: end: 202510
  2. FLOMAX [Suspect]
     Active Substance: TAMSULOSIN HYDROCHLORIDE
     Indication: Nocturia
     Dosage: 0.4 MG, QD (0.4 MG INITIAL DOSE WAS ONE 0.4MG CAPSULE PER DAY. THEN DOCTOR INCREASED TO TWO 0.4MG CA
     Route: 065
     Dates: end: 202412
  3. FLOMAX [Suspect]
     Active Substance: TAMSULOSIN HYDROCHLORIDE
     Indication: Prostatomegaly
  4. XTANDI [Suspect]
     Active Substance: ENZALUTAMIDE
     Indication: Hormone-dependent prostate cancer
     Dosage: 160 MG, QD (4 X 40 MG (160 MG) ONCE DAILY)
     Route: 048
     Dates: start: 202407
  5. XTANDI [Suspect]
     Active Substance: ENZALUTAMIDE
     Indication: Hormone-dependent prostate cancer
     Dosage: 160 MG, QD (80X2)
     Route: 048
     Dates: start: 202406, end: 2024
  6. LUPRON [Concomitant]
     Active Substance: LEUPROLIDE ACETATE
     Indication: Prostate cancer
     Dosage: UNK UNK, Q3M
     Route: 065
  7. LUPRON [Concomitant]
     Active Substance: LEUPROLIDE ACETATE
     Dosage: UNK UNK, Q6M (WAS EVERY 3 MONTHS BUT NOW EVERY 6 MONTHS)
     Route: 065
  8. TYLENOL [Concomitant]
     Active Substance: ACETAMINOPHEN
     Indication: Arthritis
     Dosage: UNK
     Route: 065
  9. TYLENOL [Concomitant]
     Active Substance: ACETAMINOPHEN
     Indication: Fibromyalgia
  10. CIALIS [Concomitant]
     Active Substance: TADALAFIL
     Indication: Erectile dysfunction
     Dosage: UNK
     Route: 065
  11. EXFORGE [Concomitant]
     Active Substance: AMLODIPINE BESYLATE\VALSARTAN
     Indication: Blood pressure increased
     Dosage: UNK
     Route: 065

REACTIONS (2)
  - Dizziness [Recovered/Resolved]
  - Drug ineffective [Unknown]

NARRATIVE: CASE EVENT DATE: 20240101
